FAERS Safety Report 6238942-7 (Version None)
Quarter: 2009Q2

REPORT INFORMATION
  Report Type: 
  Country: None (occurrence: None)
  Receive Date: 20090622
  Receipt Date: 20090616
  Transmission Date: 20091009
  Serious: Yes (Death, Hospitalization)
  Sender: FDA-Public Use
  Company Number: CH-ELI_LILLY_AND_COMPANY-CH200906003834

PATIENT
  Age: 71 Year
  Sex: Female
  Weight: 59 kg

DRUGS (10)
  1. ALIMTA [Suspect]
     Indication: LUNG ADENOCARCINOMA
     Dosage: 500 MG/M2, UNK
     Route: 042
     Dates: start: 20090518
  2. TRAMADOL HCL [Concomitant]
     Dosage: UNK, UNKNOWN
     Route: 048
  3. EFFEXOR [Concomitant]
     Dosage: UNK, UNKNOWN
     Route: 048
  4. NEXIUM [Concomitant]
     Dosage: 40 MG, DAILY (1/D)
     Route: 048
  5. SERESTA [Concomitant]
     Dosage: UNK, UNKNOWN
     Route: 048
  6. ASPIRIN [Concomitant]
     Dosage: 100 MG, DAILY (1/D)
     Route: 048
  7. PRAVALOTIN [Concomitant]
     Dosage: UNK, UNKNOWN
     Route: 048
  8. ZYLORIC [Concomitant]
     Dosage: UNK, UNKNOWN
     Route: 048
  9. FOLIC ACID [Concomitant]
     Dosage: UNK, UNKNOWN
     Route: 048
  10. CYANOCOBALAMIN [Concomitant]
     Dosage: UNK, UNKNOWN
     Route: 030
     Dates: start: 20090401

REACTIONS (5)
  - AGRANULOCYTOSIS [None]
  - INFECTION [None]
  - MUCOSAL INFLAMMATION [None]
  - PANCYTOPENIA [None]
  - PYREXIA [None]
